FAERS Safety Report 18405596 (Version 1)
Quarter: 2020Q4

REPORT INFORMATION
  Report Type: Spontaneous
  Country: FR (occurrence: FR)
  Receive Date: 20201020
  Receipt Date: 20201020
  Transmission Date: 20210114
  Serious: Yes (Hospitalization, Other)
  Sender: FDA-Public Use
  Company Number: FR-MYLANLABS-2020M1080887

PATIENT
  Age: 52 Year
  Sex: Male

DRUGS (4)
  1. CLOBETASOL 0.05% [Suspect]
     Active Substance: CLOBETASOL
     Indication: PURPURA
     Dosage: UNK
     Route: 003
     Dates: start: 201901
  2. PREDNISONE. [Suspect]
     Active Substance: PREDNISONE
     Dosage: 1 MILLIGRAM/KILOGRAM, QD
  3. PREDNISONE. [Suspect]
     Active Substance: PREDNISONE
     Dosage: 80 MILLIGRAM, QD
     Route: 065
     Dates: start: 201901
  4. PREDNISONE. [Suspect]
     Active Substance: PREDNISONE
     Indication: PURPURA
     Dosage: 15 MILLIGRAM, QD
     Route: 065
     Dates: start: 201901

REACTIONS (4)
  - Intentional product use issue [Unknown]
  - Drug ineffective [Unknown]
  - Off label use [Unknown]
  - Drug ineffective for unapproved indication [Unknown]

NARRATIVE: CASE EVENT DATE: 201901
